FAERS Safety Report 11079024 (Version 1)
Quarter: 2015Q2

REPORT INFORMATION
  Report Type: Spontaneous
  Country: IT (occurrence: IT)
  Receive Date: 20150430
  Receipt Date: 20150430
  Transmission Date: 20150821
  Serious: Yes (Hospitalization)
  Sender: FDA-Public Use
  Company Number: IT-ASTRAZENECA-2015SE38486

PATIENT
  Age: 27045 Day
  Sex: Male

DRUGS (9)
  1. BRILIQUE [Suspect]
     Active Substance: TICAGRELOR
     Indication: MYOCARDIAL ISCHAEMIA
     Route: 048
     Dates: start: 20150404, end: 20150413
  2. DELTACORTENE [Suspect]
     Active Substance: PREDNISONE
     Route: 048
     Dates: end: 20150413
  3. ATORVASTATIN [Concomitant]
     Active Substance: ATORVASTATIN
  4. LANTUS [Concomitant]
     Active Substance: INSULIN GLARGINE
     Dosage: 8 DOSAGE FORM, 100 U/ML INJECTABLE SOLUTION-PRE FILLED PEN
  5. CARDIOASPIRIN [Suspect]
     Active Substance: ASPIRIN
     Indication: MYOCARDIAL ISCHAEMIA
     Route: 048
     Dates: start: 20150404, end: 20150413
  6. PYRIDOSTIGMINE [Concomitant]
     Active Substance: PYRIDOSTIGMINE
  7. APIDRA [Concomitant]
     Active Substance: INSULIN GLULISINE
     Dosage: 18 DOSAGE FORM, 100 U/ML INJECTABLE SOLUTION
  8. PANTORC [Concomitant]
     Active Substance: PANTOPRAZOLE SODIUM
  9. DOMPERIDONE [Concomitant]
     Active Substance: DOMPERIDONE

REACTIONS (3)
  - Haemoglobin decreased [Unknown]
  - Gastric haemorrhage [Recovering/Resolving]
  - Oesophageal haemorrhage [Recovering/Resolving]

NARRATIVE: CASE EVENT DATE: 20150413
